FAERS Safety Report 7246195-6 (Version None)
Quarter: 2011Q1

REPORT INFORMATION
  Report Type: 
  Country: None (occurrence: None)
  Receive Date: 20110126
  Receipt Date: 20110119
  Transmission Date: 20110831
  Serious: Yes (Life-Threatening, Hospitalization)
  Sender: FDA-Public Use
  Company Number: B0689981A

PATIENT
  Age: 29 Year
  Sex: Male

DRUGS (21)
  1. ASPIRIN [Concomitant]
  2. LAMICTAL [Suspect]
     Dosage: 25MG PER DAY
     Route: 048
     Dates: start: 20100902, end: 20100916
  3. LAMICTAL [Suspect]
     Dosage: 50MG PER DAY
     Route: 048
     Dates: start: 20100917, end: 20100927
  4. HOKUNALIN [Concomitant]
     Indication: ANALGESIC ASTHMA SYNDROME
     Dosage: 2MG PER DAY
     Route: 062
  5. OMEPRAL [Concomitant]
     Indication: GASTRIC ULCER
     Dosage: 20MG PER DAY
     Route: 048
  6. DECADRON [Concomitant]
     Indication: ANALGESIC ASTHMA SYNDROME
     Dosage: 1MG PER DAY
     Route: 048
  7. LAMICTAL [Suspect]
     Indication: BIPOLAR DISORDER
     Dosage: 25MG TWICE PER DAY
     Route: 048
     Dates: start: 20100820, end: 20100901
  8. MYSLEE [Concomitant]
     Indication: BIPOLAR DISORDER
     Route: 048
     Dates: start: 20080509
  9. BENZALIN [Concomitant]
     Indication: INSOMNIA
     Dosage: 10MG PER DAY
     Route: 048
     Dates: start: 20100917
  10. PROMAC [Concomitant]
     Indication: GASTRIC ULCER
     Dosage: 150MG PER DAY
     Route: 048
  11. MAGMITT [Concomitant]
     Indication: CONSTIPATION
     Dosage: 1980MG PER DAY
     Route: 048
  12. CELESTAMINE TAB [Concomitant]
     Indication: DRUG ERUPTION
     Dosage: 2IUAX PER DAY
     Route: 048
     Dates: start: 20100925, end: 20100925
  13. LEVOTOMIN [Concomitant]
     Indication: INSOMNIA
     Dosage: 10MG PER DAY
     Route: 048
     Dates: start: 20100917
  14. CLARITH [Concomitant]
     Route: 048
  15. LENDORMIN [Concomitant]
     Indication: INSOMNIA
     Route: 048
     Dates: start: 20080327
  16. SILECE [Concomitant]
     Indication: INSOMNIA
     Dosage: 2MG PER DAY
     Route: 048
     Dates: start: 20080327
  17. SINGULAIR [Concomitant]
     Indication: ANALGESIC ASTHMA SYNDROME
     Dosage: 10MG PER DAY
     Route: 048
  18. SOLU-MEDROL [Concomitant]
  19. DEPAKENE [Suspect]
     Indication: BIPOLAR DISORDER
     Dosage: 400MG PER DAY
     Route: 048
     Dates: start: 20100702, end: 20100925
  20. DEPAKENE [Suspect]
     Dosage: 200MG PER DAY
     Route: 048
     Dates: start: 20100704, end: 20100925
  21. THEO-DUR [Concomitant]
     Indication: ANALGESIC ASTHMA SYNDROME
     Dosage: 800MG PER DAY
     Route: 048

REACTIONS (2)
  - ANALGESIC ASTHMA SYNDROME [None]
  - TOXIC EPIDERMAL NECROLYSIS [None]
